FAERS Safety Report 24917646 (Version 1)
Quarter: 2025Q1

REPORT INFORMATION
  Report Type: Spontaneous
  Country: US (occurrence: US)
  Receive Date: 20250203
  Receipt Date: 20250203
  Transmission Date: 20250409
  Serious: No
  Sender: SANOFI AVENTIS
  Company Number: US-SA-2025SA031446

PATIENT
  Age: 41 Year
  Sex: Female

DRUGS (1)
  1. DUPIXENT [Suspect]
     Active Substance: DUPILUMAB
     Indication: Dermatitis atopic
     Dosage: 300.000MG QOW
     Route: 058

REACTIONS (5)
  - Pruritus [Unknown]
  - Skin fissures [Unknown]
  - Dry skin [Unknown]
  - Injection site pruritus [Unknown]
  - Dry eye [Unknown]

NARRATIVE: CASE EVENT DATE: 20250101
